FAERS Safety Report 15335803 (Version 2)
Quarter: 2018Q3

REPORT INFORMATION
  Report Type: Report from Study
  Country: US (occurrence: US)
  Receive Date: 20180830
  Receipt Date: 20180927
  Transmission Date: 20181010
  Serious: Yes (Other)
  Sender: FDA-Public Use
  Company Number: US-MALLINCKRODT-T201803587

PATIENT
  Sex: Female

DRUGS (2)
  1. REPOSITORY CORTICOTROPIN INJECTION [Suspect]
     Active Substance: CORTICOTROPIN
     Indication: UVEITIS
     Dosage: 80 UNITS/1 ML, 1 TIME PER WEEK (THURSDAY)
     Route: 058
     Dates: start: 20180412, end: 2018
  2. REPOSITORY CORTICOTROPIN INJECTION [Suspect]
     Active Substance: CORTICOTROPIN
     Indication: DRY EYE

REACTIONS (7)
  - Pain in extremity [Unknown]
  - Myalgia [Unknown]
  - Diabetes mellitus [Unknown]
  - Arthralgia [Unknown]
  - Poor peripheral circulation [Unknown]
  - Oedema peripheral [Unknown]
  - Thyroid disorder [Unknown]

NARRATIVE: CASE EVENT DATE: 2018
